FAERS Safety Report 25059549 (Version 1)
Quarter: 2025Q1

REPORT INFORMATION
  Report Type: Spontaneous
  Country: US (occurrence: None)
  Receive Date: 20250310
  Receipt Date: 20250310
  Transmission Date: 20250409
  Serious: No
  Sender: FDA-CTU
  Company Number: None

PATIENT

DRUGS (1)
  1. TUBERCULIN, TINE TEST [Suspect]
     Active Substance: TUBERCULIN, TINE TEST

REACTIONS (7)
  - Arthralgia [None]
  - Fatigue [None]
  - Pruritus [None]
  - Pain [None]
  - Arthralgia [None]
  - Burning sensation [None]
  - Post procedural complication [None]
